FAERS Safety Report 8462125-3 (Version None)
Quarter: 2012Q2

REPORT INFORMATION
  Report Type: 
  Country: None (occurrence: None)
  Receive Date: 20120625
  Receipt Date: 20120611
  Transmission Date: 20120825
  Serious: Yes (Other)
  Sender: FDA-Public Use
  Company Number: NZ-MYLANLABS-2012S1011855

PATIENT
  Age: 41 Year
  Sex: Male

DRUGS (2)
  1. RIZATRIPTAN [Suspect]
     Indication: MIGRAINE
  2. IBUPROFEN [Suspect]
     Indication: MIGRAINE

REACTIONS (2)
  - MIGRAINE [None]
  - HEADACHE [None]
